FAERS Safety Report 8808163 (Version 3)
Quarter: 2013Q4

REPORT INFORMATION
  Report Type: Spontaneous
  Country: US (occurrence: US)
  Receive Date: 20120925
  Receipt Date: 20131008
  Transmission Date: 20140711
  Serious: Yes (Hospitalization, Other)
  Sender: FDA-Public Use
  Company Number: US-UCBSA-066644

PATIENT
  Age: 41 Year
  Sex: Female

DRUGS (4)
  1. CIMZIA [Suspect]
     Indication: RHEUMATOID ARTHRITIS
     Dates: start: 20111130, end: 201207
  2. PREDNISONE [Concomitant]
     Dates: start: 2006, end: 2012
  3. PREDNISONE [Concomitant]
     Dosage: TAPERED DOSE
     Dates: start: 2012, end: 2013
  4. ENBREL [Concomitant]
     Dates: start: 2006, end: 2011

REACTIONS (2)
  - Pneumonia [Recovered/Resolved]
  - Rheumatoid arthritis [Not Recovered/Not Resolved]
